FAERS Safety Report 7319331-0 (Version None)
Quarter: 2011Q1

REPORT INFORMATION
  Report Type: 
  Country: None (occurrence: None)
  Receive Date: 20110228
  Receipt Date: 20100218
  Transmission Date: 20110831
  Serious: No
  Sender: FDA-Public Use
  Company Number: A0842814A

PATIENT
  Age: 12 Year
  Sex: Female

DRUGS (2)
  1. LAMICTAL [Suspect]
     Indication: EPILEPSY
     Route: 048
  2. KEPPRA [Concomitant]

REACTIONS (2)
  - ALOPECIA [None]
  - TRICHORRHEXIS [None]
